FAERS Safety Report 16165096 (Version 1)
Quarter: 2019Q2

REPORT INFORMATION
  Report Type: Spontaneous
  Country: US (occurrence: US)
  Receive Date: 20190405
  Receipt Date: 20190405
  Transmission Date: 20190711
  Serious: No
  Sender: FDA-Public Use
  Company Number: US-SUNOVION-2019SUN001336

PATIENT

DRUGS (1)
  1. LATUDA [Suspect]
     Active Substance: LURASIDONE HYDROCHLORIDE
     Dosage: 40 MG, NIGHT TIME BEFORE BED
     Route: 048

REACTIONS (4)
  - Feeling abnormal [Unknown]
  - Crying [Unknown]
  - Anxiety [Unknown]
  - Fatigue [Unknown]
